FAERS Safety Report 6223432-8 (Version None)
Quarter: 2009Q2

REPORT INFORMATION
  Report Type: 
  Country: None (occurrence: None)
  Receive Date: 20090611
  Receipt Date: 20090601
  Transmission Date: 20091009
  Serious: Yes (Hospitalization, Other)
  Sender: FDA-Public Use
  Company Number: TH-ABBOTT-09P-155-0576999-00

PATIENT
  Age: 67 Year
  Sex: Female

DRUGS (1)
  1. WARFARIN SODIUM [Suspect]
     Indication: GERSTMANN'S SYNDROME

REACTIONS (1)
  - SMALL INTESTINAL HAEMORRHAGE [None]
